FAERS Safety Report 8264793-8 (Version None)
Quarter: 2012Q2

REPORT INFORMATION
  Report Type: 
  Country: None (occurrence: None)
  Receive Date: 20120406
  Receipt Date: 20120326
  Transmission Date: 20120825
  Serious: No
  Sender: FDA-Public Use
  Company Number: US-JNJFOC-20120314505

PATIENT
  Age: 17 Year
  Sex: Female

DRUGS (2)
  1. INVEGA [Suspect]
     Indication: SCHIZOPHRENIA
     Route: 048
  2. INVEGA [Suspect]
     Route: 048

REACTIONS (1)
  - WEIGHT INCREASED [None]
